FAERS Safety Report 4307701-4 (Version None)
Quarter: 2004Q1

REPORT INFORMATION
  Report Type: 
  Country: None (occurrence: None)
  Receive Date: 20040226
  Receipt Date: 20040213
  Transmission Date: 20041129
  Serious: Yes (Life-Threatening, Hospitalization, Other)
  Sender: FDA-Public Use
  Company Number: FRWYE449605DEC03

PATIENT
  Age: 60 Year
  Sex: Female

DRUGS (14)
  1. RAPAMUNE [Suspect]
     Indication: PROPHYLAXIS AGAINST TRANSPLANT REJECTION
     Dosage: 5 + 8 + 10 +15 MG 1X PER 1 DAY ORAL
     Route: 048
     Dates: start: 20031107, end: 20031108
  2. RAPAMUNE [Suspect]
     Indication: RENAL TRANSPLANT
     Dosage: 5 + 8 + 10 +15 MG 1X PER 1 DAY ORAL
     Route: 048
     Dates: start: 20031107, end: 20031108
  3. RAPAMUNE [Suspect]
     Indication: PROPHYLAXIS AGAINST TRANSPLANT REJECTION
     Dosage: 5 + 8 + 10 +15 MG 1X PER 1 DAY ORAL
     Route: 048
     Dates: start: 20031109, end: 20031111
  4. RAPAMUNE [Suspect]
     Indication: RENAL TRANSPLANT
     Dosage: 5 + 8 + 10 +15 MG 1X PER 1 DAY ORAL
     Route: 048
     Dates: start: 20031109, end: 20031111
  5. RAPAMUNE [Suspect]
     Indication: PROPHYLAXIS AGAINST TRANSPLANT REJECTION
     Dosage: 5 + 8 + 10 +15 MG 1X PER 1 DAY ORAL
     Route: 048
     Dates: start: 20031112, end: 20031114
  6. RAPAMUNE [Suspect]
     Indication: RENAL TRANSPLANT
     Dosage: 5 + 8 + 10 +15 MG 1X PER 1 DAY ORAL
     Route: 048
     Dates: start: 20031112, end: 20031114
  7. RAPAMUNE [Suspect]
     Indication: PROPHYLAXIS AGAINST TRANSPLANT REJECTION
     Dosage: 5 + 8 + 10 +15 MG 1X PER 1 DAY ORAL
     Route: 048
     Dates: start: 20031125, end: 20031218
  8. RAPAMUNE [Suspect]
     Indication: RENAL TRANSPLANT
     Dosage: 5 + 8 + 10 +15 MG 1X PER 1 DAY ORAL
     Route: 048
     Dates: start: 20031125, end: 20031218
  9. CELLCEPT [Suspect]
     Indication: PROPHYLAXIS AGAINST TRANSPLANT REJECTION
     Dosage: 250 + 750 MG 1X + 2X PER 1 DAY ORAL
     Route: 048
     Dates: start: 20031106, end: 20031106
  10. CELLCEPT [Suspect]
     Indication: RENAL TRANSPLANT
     Dosage: 250 + 750 MG 1X + 2X PER 1 DAY ORAL
     Route: 048
     Dates: start: 20031106, end: 20031106
  11. CELLCEPT [Suspect]
     Indication: PROPHYLAXIS AGAINST TRANSPLANT REJECTION
     Dosage: 250 + 750 MG 1X + 2X PER 1 DAY ORAL
     Route: 048
     Dates: start: 20031107, end: 20031109
  12. CELLCEPT [Suspect]
     Indication: RENAL TRANSPLANT
     Dosage: 250 + 750 MG 1X + 2X PER 1 DAY ORAL
     Route: 048
     Dates: start: 20031107, end: 20031109
  13. CELLCEPT [Suspect]
     Indication: PROPHYLAXIS AGAINST TRANSPLANT REJECTION
     Dosage: 250 + 750 MG 1X + 2X PER 1 DAY ORAL
     Route: 048
     Dates: start: 20031112, end: 20031218
  14. CELLCEPT [Suspect]
     Indication: RENAL TRANSPLANT
     Dosage: 250 + 750 MG 1X + 2X PER 1 DAY ORAL
     Route: 048
     Dates: start: 20031112, end: 20031218

REACTIONS (11)
  - CLOSTRIDIUM COLITIS [None]
  - DRUG LEVEL ABOVE THERAPEUTIC [None]
  - HAEMODIALYSIS [None]
  - HAEMOGLOBIN DECREASED [None]
  - KIDNEY TRANSPLANT REJECTION [None]
  - PANCYTOPENIA [None]
  - POST PROCEDURAL COMPLICATION [None]
  - RESPIRATORY DISTRESS [None]
  - SEPSIS [None]
  - THROMBOCYTOPENIA [None]
  - WHITE BLOOD CELL COUNT DECREASED [None]
